FAERS Safety Report 6405090-2 (Version None)
Quarter: 2009Q4

REPORT INFORMATION
  Report Type: 
  Country: None (occurrence: None)
  Receive Date: 20091019
  Receipt Date: 20091007
  Transmission Date: 20100525
  Serious: Yes (Other)
  Sender: FDA-Public Use
  Company Number: GB-ROCHE-661256

PATIENT
  Sex: Female

DRUGS (2)
  1. ISOTRETINOIN [Suspect]
     Indication: DRUG USE FOR UNKNOWN INDICATION
     Dosage: ACTION TAKEN: DOSE REDUCED
     Route: 065
  2. ISOTRETINOIN [Suspect]
     Route: 065

REACTIONS (5)
  - BACK PAIN [None]
  - DYSPNOEA [None]
  - HEADACHE [None]
  - VISION BLURRED [None]
  - VOMITING [None]
